FAERS Safety Report 23115012 (Version 2)
Quarter: 2023Q4

REPORT INFORMATION
  Report Type: Report from Study
  Country: NL (occurrence: NL)
  Receive Date: 20231027
  Receipt Date: 20231122
  Transmission Date: 20240109
  Serious: Yes (Other)
  Sender: FDA-Public Use
  Company Number: NL-SA-2023SA327501

PATIENT
  Sex: Female

DRUGS (2)
  1. DUPILUMAB [Suspect]
     Active Substance: DUPILUMAB
     Indication: Dermatitis atopic
     Dosage: 600 MG, 1X (LOADING DOSE)
     Route: 058
  2. DUPILUMAB [Suspect]
     Active Substance: DUPILUMAB
     Dosage: 300 MG, QOW (STANDARD DOSAGE)
     Route: 058

REACTIONS (4)
  - Cutaneous T-cell lymphoma [Recovering/Resolving]
  - Acanthosis [Recovering/Resolving]
  - Parakeratosis [Recovering/Resolving]
  - Lymphocytic infiltration [Recovering/Resolving]
